FAERS Safety Report 14859290 (Version 3)
Quarter: 2018Q2

REPORT INFORMATION
  Report Type: Report from Study
  Country: US (occurrence: US)
  Receive Date: 20180508
  Receipt Date: 20180620
  Transmission Date: 20180711
  Serious: Yes (Other)
  Sender: FDA-Public Use
  Company Number: US-TEVA-2018-US-889135

PATIENT
  Sex: Male

DRUGS (1)
  1. COPAXONE [Suspect]
     Active Substance: GLATIRAMER ACETATE
     Indication: MULTIPLE SCLEROSIS
     Route: 058
     Dates: start: 20171120

REACTIONS (8)
  - Hypoaesthesia [Recovered/Resolved]
  - Motor dysfunction [Recovered/Resolved]
  - Dizziness [Unknown]
  - Coordination abnormal [Unknown]
  - Blood pressure increased [Not Recovered/Not Resolved]
  - Trismus [Recovered/Resolved]
  - Fatigue [Unknown]
  - Speech disorder [Recovered/Resolved]
